FAERS Safety Report 8159396-X (Version None)
Quarter: 2012Q1

REPORT INFORMATION
  Report Type: 
  Country: None (occurrence: None)
  Receive Date: 20120223
  Receipt Date: 20120213
  Transmission Date: 20120608
  Serious: Yes (Death, Hospitalization)
  Sender: FDA-Public Use
  Company Number: US-BAXTER-2012BH003419

PATIENT
  Sex: Male
  Weight: 86 kg

DRUGS (2)
  1. DIANEAL [Suspect]
     Indication: PERITONEAL DIALYSIS
     Route: 033
     Dates: start: 20111101, end: 20120201
  2. DIANEAL [Suspect]
     Route: 033
     Dates: start: 20111101, end: 20120201

REACTIONS (5)
  - TREATMENT NONCOMPLIANCE [None]
  - WOUND COMPLICATION [None]
  - CARDIAC ARREST [None]
  - CHEST DISCOMFORT [None]
  - SEPSIS [None]
